FAERS Safety Report 8861265 (Version 1)
Quarter: 2012Q4

REPORT INFORMATION
  Report Type: 
  Country: US (occurrence: US)
  Receive Date: 20121026
  Receipt Date: 20121026
  Transmission Date: 20130627
  Serious: Yes (Hospitalization)
  Sender: FDA-Public Use
  Company Number: US-AMGEN-USASP2012067319

PATIENT
  Age: 82 Year
  Sex: Male

DRUGS (5)
  1. SENSIPAR [Suspect]
     Indication: HYPERPARATHYROIDISM SECONDARY
     Dosage: 30 mg, qd
     Dates: start: 201103
  2. AMLODIPINE [Concomitant]
  3. SERTRALINE [Concomitant]
  4. OMEPRAZOLE [Concomitant]
  5. TOPROL [Concomitant]

REACTIONS (1)
  - Fall [Unknown]
